FAERS Safety Report 9288026 (Version 1)
Quarter: 2013Q2

REPORT INFORMATION
  Report Type: Spontaneous
  Country: DE (occurrence: DE)
  Receive Date: 20130514
  Receipt Date: 20130514
  Transmission Date: 20140414
  Serious: Yes (Hospitalization)
  Sender: FDA-Public Use
  Company Number: DE-ELI_LILLY_AND_COMPANY-DE201305000946

PATIENT
  Sex: Male

DRUGS (5)
  1. FORSTEO [Suspect]
     Indication: OSTEOPOROSIS
     Dosage: UNK, QD
     Route: 058
     Dates: start: 20120709
  2. MARCUMAR [Concomitant]
     Route: 065
  3. MORPHINE [Concomitant]
     Route: 065
  4. FERRO SANOL [Concomitant]
     Route: 065
  5. SALOFALK [Concomitant]
     Route: 065

REACTIONS (1)
  - Arrhythmia [Not Recovered/Not Resolved]
